FAERS Safety Report 23083525 (Version 1)
Quarter: 2023Q4

REPORT INFORMATION
  Report Type: Spontaneous
  Country: US (occurrence: US)
  Receive Date: 20231019
  Receipt Date: 20231019
  Transmission Date: 20240110
  Serious: Yes (Hospitalization)
  Sender: FDA-Public Use
  Company Number: US-drreddys-SPO/USA/23/0179562

PATIENT
  Age: 48 Year
  Sex: Female

DRUGS (3)
  1. CLOZAPINE [Suspect]
     Active Substance: CLOZAPINE
     Indication: Product used for unknown indication
     Dates: start: 20230321
  2. CLOZAPINE [Suspect]
     Active Substance: CLOZAPINE
     Dosage: DOSAGE WAS RAISED EVERY 2 WEEKS AT 12.5 MG TO MONITOR WBC/ANC
     Dates: start: 20230822
  3. CLOZAPINE [Suspect]
     Active Substance: CLOZAPINE
     Dosage: QHS
     Dates: start: 202308

REACTIONS (1)
  - Illness [Unknown]

NARRATIVE: CASE EVENT DATE: 20230801
